FAERS Safety Report 7691679-X (Version None)
Quarter: 2011Q3

REPORT INFORMATION
  Report Type: 
  Country: None (occurrence: None)
  Receive Date: 20110818
  Receipt Date: 20090820
  Transmission Date: 20111222
  Serious: Yes (Hospitalization)
  Sender: FDA-Public Use
  Company Number: US-GLAXOSMITHKLINE-A0804265A

PATIENT
  Sex: Male
  Weight: 131.4 kg

DRUGS (14)
  1. ASPIRIN [Concomitant]
  2. ATENOLOL [Concomitant]
  3. RANITIDINE [Concomitant]
  4. AVANDIA [Suspect]
     Indication: DIABETES MELLITUS
     Route: 048
     Dates: start: 20030101, end: 20070701
  5. METFORMIN [Concomitant]
  6. GLIPIZIDE [Concomitant]
  7. INSULIN [Concomitant]
  8. ISOSORBIDE DINITRATE [Concomitant]
  9. PLAVIX [Concomitant]
  10. LISINOPRIL [Concomitant]
  11. CYMBALTA [Concomitant]
  12. PROZAC [Concomitant]
  13. TRAZODONE HCL [Concomitant]
  14. ZOCOR [Concomitant]

REACTIONS (2)
  - ATRIAL FIBRILLATION [None]
  - CHEST PAIN [None]
